FAERS Safety Report 4766403-0 (Version None)
Quarter: 2005Q3

REPORT INFORMATION
  Report Type: 
  Country: None (occurrence: None)
  Receive Date: 20050909
  Receipt Date: 20050824
  Transmission Date: 20060218
  Serious: Yes (Other)
  Sender: FDA-Public Use
  Company Number: 217022

PATIENT
  Age: 38 Year
  Sex: Female
  Weight: 59 kg

DRUGS (2)
  1. XOLAIR [Suspect]
     Indication: ASTHMA
     Dosage: 300 MG, UNKNOWN, SUBCUTANEOUS
     Route: 058
     Dates: start: 20050121, end: 20050621
  2. SERETIDE (FLUTICASONE PROPIONATE, SALMETEROL XINAFOATE) [Concomitant]

REACTIONS (4)
  - DISORIENTATION [None]
  - DRUG HYPERSENSITIVITY [None]
  - FACE OEDEMA [None]
  - LOSS OF CONSCIOUSNESS [None]
